FAERS Safety Report 10586147 (Version 2)
Quarter: 2014Q4

REPORT INFORMATION
  Report Type: Spontaneous
  Country: MA (occurrence: MA)
  Receive Date: 20141115
  Receipt Date: 20141124
  Transmission Date: 20150529
  Serious: Yes (Hospitalization)
  Sender: FDA-Public Use
  Company Number: PHHY2014MA148514

PATIENT
  Age: 18 Year
  Sex: Female

DRUGS (6)
  1. CARBAMAZEPINE. [Suspect]
     Active Substance: CARBAMAZEPINE
     Indication: TEMPORAL LOBE EPILEPSY
     Dosage: 800 MG, QD
     Route: 065
  2. AMISULPRIDE [Interacting]
     Active Substance: AMISULPRIDE
     Indication: PERSECUTORY DELUSION
     Dosage: 600 MG, QD
     Route: 065
  3. AMISULPRIDE [Interacting]
     Active Substance: AMISULPRIDE
     Indication: DELUSION
  4. AMISULPRIDE [Interacting]
     Active Substance: AMISULPRIDE
     Indication: HALLUCINATION, AUDITORY
  5. TEMESTA [Concomitant]
     Active Substance: LORAZEPAM
     Indication: ANXIOLYTIC THERAPY
     Dosage: 7.5 MG, QD
     Route: 065
  6. AMISULPRIDE [Interacting]
     Active Substance: AMISULPRIDE
     Indication: PSYCHOMOTOR SKILLS IMPAIRED

REACTIONS (8)
  - Drug interaction [Unknown]
  - Neuroleptic malignant syndrome [Recovered/Resolved]
  - Tachycardia [Recovered/Resolved]
  - Tremor [Recovered/Resolved]
  - Hypertonia [Recovered/Resolved]
  - Hyperhidrosis [Recovered/Resolved]
  - Depressed level of consciousness [Recovered/Resolved]
  - Blood creatine phosphokinase increased [Recovered/Resolved]
